FAERS Safety Report 9741920 (Version 1)
Quarter: 2013Q4

REPORT INFORMATION
  Report Type: Spontaneous
  Country: BR (occurrence: BR)
  Receive Date: 20131210
  Receipt Date: 20131210
  Transmission Date: 20140711
  Serious: Yes (Other)
  Sender: FDA-Public Use
  Company Number: BR-JNJFOC-20131118394

PATIENT
  Sex: Female

DRUGS (3)
  1. TYLEX [Suspect]
     Route: 065
  2. TYLEX [Suspect]
     Indication: PAIN
     Route: 065
  3. ENALAPRIL [Concomitant]
     Indication: HYPERTENSION
     Route: 065

REACTIONS (2)
  - Dyspnoea [Recovered/Resolved]
  - Somnolence [Not Recovered/Not Resolved]
